FAERS Safety Report 7716323-4 (Version None)
Quarter: 2011Q3

REPORT INFORMATION
  Report Type: 
  Country: None (occurrence: None)
  Receive Date: 20110829
  Receipt Date: 20110818
  Transmission Date: 20111222
  Serious: Yes (Other)
  Sender: FDA-Public Use
  Company Number: PHHY2011JP74162

PATIENT
  Age: 74 Year
  Sex: Female

DRUGS (2)
  1. TS 1 [Suspect]
     Indication: LUNG NEOPLASM MALIGNANT
     Route: 048
  2. ZOMETA [Suspect]
     Indication: METASTASES TO BONE
     Route: 041

REACTIONS (3)
  - CARCINOEMBRYONIC ANTIGEN INCREASED [None]
  - ENTEROCOLITIS HAEMORRHAGIC [None]
  - ANAPHYLACTIC REACTION [None]
